FAERS Safety Report 20683957 (Version 2)
Quarter: 2022Q2

REPORT INFORMATION
  Report Type: Report from Study
  Country: US (occurrence: US)
  Receive Date: 20220407
  Receipt Date: 20220628
  Transmission Date: 20220720
  Serious: Yes (Life-Threatening, Hospitalization, Other)
  Sender: FDA-Public Use
  Company Number: US-TAKEDA-2022TUS021890

PATIENT
  Age: 73 Year
  Sex: Male

DRUGS (12)
  1. TEDUGLUTIDE [Suspect]
     Active Substance: TEDUGLUTIDE
     Indication: Short-bowel syndrome
     Dosage: 0.35 MILLIGRAM, QD
     Route: 058
     Dates: start: 20150122
  2. TEDUGLUTIDE [Suspect]
     Active Substance: TEDUGLUTIDE
     Indication: Short-bowel syndrome
     Dosage: 0.35 MILLIGRAM, QD
     Route: 058
     Dates: start: 20150122
  3. TEDUGLUTIDE [Suspect]
     Active Substance: TEDUGLUTIDE
     Indication: Short-bowel syndrome
     Dosage: 0.35 MILLIGRAM, QD
     Route: 058
     Dates: start: 20150122
  4. TEDUGLUTIDE [Suspect]
     Active Substance: TEDUGLUTIDE
     Indication: Short-bowel syndrome
     Dosage: 0.35 MILLIGRAM, QD
     Route: 058
     Dates: start: 20150122
  5. TEDUGLUTIDE [Suspect]
     Active Substance: TEDUGLUTIDE
     Dosage: 0.35 DOSAGE FORM
     Route: 050
     Dates: start: 20151109
  6. TEDUGLUTIDE [Suspect]
     Active Substance: TEDUGLUTIDE
     Dosage: 0.35 DOSAGE FORM
     Route: 050
     Dates: start: 20151109
  7. TEDUGLUTIDE [Suspect]
     Active Substance: TEDUGLUTIDE
     Dosage: 0.35 DOSAGE FORM
     Route: 050
     Dates: start: 20151109
  8. TEDUGLUTIDE [Suspect]
     Active Substance: TEDUGLUTIDE
     Dosage: 0.35 DOSAGE FORM
     Route: 050
     Dates: start: 20151109
  9. TEDUGLUTIDE [Suspect]
     Active Substance: TEDUGLUTIDE
     Dosage: 0.350 MILLILITER, QD
     Route: 050
     Dates: start: 20151109
  10. TEDUGLUTIDE [Suspect]
     Active Substance: TEDUGLUTIDE
     Dosage: 0.350 MILLILITER, QD
     Route: 050
     Dates: start: 20151109
  11. TEDUGLUTIDE [Suspect]
     Active Substance: TEDUGLUTIDE
     Dosage: 0.350 MILLILITER, QD
     Route: 050
     Dates: start: 20151109
  12. TEDUGLUTIDE [Suspect]
     Active Substance: TEDUGLUTIDE
     Dosage: 0.350 MILLILITER, QD
     Route: 050
     Dates: start: 20151109

REACTIONS (7)
  - Dialysis related complication [Unknown]
  - Ureteric cancer [Unknown]
  - Nephrolithiasis [Recovered/Resolved]
  - Acute kidney injury [Recovering/Resolving]
  - Bladder cancer [Unknown]
  - Weight decreased [Unknown]
  - Weight increased [Not Recovered/Not Resolved]

NARRATIVE: CASE EVENT DATE: 20200901
